FAERS Safety Report 6763253-0 (Version None)
Quarter: 2010Q2

REPORT INFORMATION
  Report Type: 
  Country: None (occurrence: None)
  Receive Date: 20100608
  Receipt Date: 20100608
  Transmission Date: 20101027
  Serious: Yes (Life-Threatening)
  Sender: FDA-Public Use
  Company Number: None

PATIENT
  Sex: Male
  Weight: 90.7194 kg

DRUGS (5)
  1. GABAPENTIN [Suspect]
     Indication: NEUROPATHY PERIPHERAL
     Dosage: 300 MG 1 AT HS INJ
     Route: 042
     Dates: start: 20100511, end: 20100602
  2. VICODIN [Concomitant]
  3. PERCOCET [Concomitant]
  4. CYMBALTA [Concomitant]
  5. LORAZEPAM [Concomitant]

REACTIONS (2)
  - AGITATION [None]
  - SUICIDE ATTEMPT [None]
